FAERS Safety Report 10136450 (Version 1)
Quarter: 2014Q2

REPORT INFORMATION
  Report Type: Spontaneous
  Country: US (occurrence: None)
  Receive Date: 20140425
  Receipt Date: 20140425
  Transmission Date: 20141212
  Serious: Yes (Other)
  Sender: FDA-Public Use
  Company Number: None

PATIENT
  Age: 49 Year
  Sex: Male
  Weight: 98.88 kg

DRUGS (9)
  1. EFFEXOR XR [Suspect]
     Indication: DEPRESSION
     Route: 048
     Dates: start: 20140114, end: 20140414
  2. XANAX [Concomitant]
  3. CLEOCIN [Concomitant]
  4. EFFEXOR XR [Concomitant]
  5. TEMOVATE [Concomitant]
  6. NEXIUM [Concomitant]
  7. PRIAZIDE [Concomitant]
  8. ZESTORATIC [Concomitant]
  9. KENALOG [Concomitant]

REACTIONS (18)
  - Headache [None]
  - Dizziness [None]
  - Palpitations [None]
  - Dyspnoea [None]
  - Loss of employment [None]
  - Wrong drug administered [None]
  - Dizziness [None]
  - Headache [None]
  - Asthenia [None]
  - Fall [None]
  - Head injury [None]
  - Loss of consciousness [None]
  - Chest discomfort [None]
  - Amnesia [None]
  - Concussion [None]
  - Product commingling [None]
  - Blood pressure abnormal [None]
  - Heart rate abnormal [None]
